FAERS Safety Report 7816560-4 (Version None)
Quarter: 2011Q4

REPORT INFORMATION
  Report Type: 
  Country: None (occurrence: None)
  Receive Date: 20111017
  Receipt Date: 20111011
  Transmission Date: 20120403
  Serious: Yes (Other)
  Sender: FDA-Public Use
  Company Number: US-PFIZER INC-2011242555

PATIENT
  Age: 46 Year
  Sex: Female
  Weight: 59.09 kg

DRUGS (4)
  1. COUMADIN [Concomitant]
     Dosage: UNK
  2. REVATIO [Suspect]
     Dosage: UNK
  3. TYVASO [Suspect]
     Indication: COR PULMONALE CHRONIC
     Dosage: 24 UG, 4X/DAY
     Route: 055
     Dates: start: 20101117
  4. TRACLEER [Suspect]
     Dosage: UNK

REACTIONS (3)
  - CHEST DISCOMFORT [None]
  - CHEST PAIN [None]
  - NAUSEA [None]
